FAERS Safety Report 4945009-4 (Version None)
Quarter: 2006Q1

REPORT INFORMATION
  Report Type: 
  Country: None (occurrence: None)
  Receive Date: 20060117
  Receipt Date: 20050622
  Transmission Date: 20060701
  Serious: Yes (Hospitalization)
  Sender: FDA-Public Use
  Company Number: A03200501890

PATIENT
  Sex: Male

DRUGS (3)
  1. PLAVIX [Suspect]
     Dosage: ORAL
     Route: 048
  2. ACETYLSALICYLIC ACID SRT [Concomitant]
  3. WARFARIN SODIUM [Concomitant]

REACTIONS (1)
  - POST PROCEDURAL HAEMORRHAGE [None]
